FAERS Safety Report 7414296-5 (Version None)
Quarter: 2011Q2

REPORT INFORMATION
  Report Type: 
  Country: None (occurrence: None)
  Receive Date: 20110411
  Receipt Date: 20110411
  Transmission Date: 20111010
  Serious: Yes (Other)
  Sender: FDA-Public Use
  Company Number: None

PATIENT
  Age: 63 Year
  Sex: Female

DRUGS (1)
  1. ALPRAZOLAM [Suspect]
     Indication: BIPOLAR II DISORDER
     Dosage: 0.5 MG QID BY MOUTH
     Route: 048
     Dates: start: 20110301

REACTIONS (5)
  - CONDITION AGGRAVATED [None]
  - DRUG DISPENSING ERROR [None]
  - DEPRESSION [None]
  - ANXIETY [None]
  - WITHDRAWAL SYNDROME [None]
